FAERS Safety Report 17506580 (Version 1)
Quarter: 2020Q1

REPORT INFORMATION
  Report Type: Spontaneous
  Country: ES (occurrence: ES)
  Receive Date: 20200306
  Receipt Date: 20200306
  Transmission Date: 20200409
  Serious: Yes (Hospitalization, Other)
  Sender: FDA-Public Use
  Company Number: ES-TEVA-2020-ES-1195344

PATIENT
  Age: 67 Year
  Sex: Female

DRUGS (3)
  1. FLUOROURACIL. [Suspect]
     Active Substance: FLUOROURACIL
     Dosage: CYCLE 2
     Route: 042
  2. OXALIPLATINO TEVA 5MG/ML [Suspect]
     Active Substance: OXALIPLATIN
     Dosage: CYCLE 2
     Route: 042
     Dates: start: 20200204
  3. FOLINIC ACID [Suspect]
     Active Substance: LEUCOVORIN
     Dosage: CYCLE 2
     Route: 065

REACTIONS (2)
  - Hypotension [Unknown]
  - Respiratory disorder [Unknown]

NARRATIVE: CASE EVENT DATE: 20200218
